FAERS Safety Report 23187890 (Version 2)
Quarter: 2024Q4

REPORT INFORMATION
  Report Type: Spontaneous
  Country: US (occurrence: US)
  Receive Date: 20231115
  Receipt Date: 20241115
  Transmission Date: 20250114
  Serious: No
  Sender: NOVO NORDISK
  Company Number: US-NOVOPROD-1120501

PATIENT

DRUGS (1)
  1. NOVOLOG [Suspect]
     Active Substance: INSULIN ASPART
     Indication: Product use in unapproved indication
     Dosage: UNK
     Route: 058

REACTIONS (4)
  - Vomiting [Unknown]
  - Diarrhoea [Unknown]
  - Product storage error [Unknown]
  - Product preparation error [Unknown]
